FAERS Safety Report 8523235-5 (Version None)
Quarter: 2012Q3

REPORT INFORMATION
  Report Type: 
  Country: None (occurrence: None)
  Receive Date: 20120709
  Receipt Date: 20120626
  Transmission Date: 20120928
  Serious: Yes (Other)
  Sender: FDA-Public Use
  Company Number: 7143570

PATIENT
  Age: 87 Year
  Sex: Male

DRUGS (1)
  1. LEVOTHYROXINE SODIUM [Suspect]
     Indication: THYROXINE ABNORMAL
     Dosage: 25 MCG (25 MCG, 1 IN 1 D), 50 MCG (50 MCG, 1 IN 1 D)
     Dates: start: 20120401, end: 20120515

REACTIONS (4)
  - NERVOUSNESS [None]
  - SUICIDAL IDEATION [None]
  - IRRITABILITY [None]
  - INSOMNIA [None]
